FAERS Safety Report 14317405 (Version 1)
Quarter: 2017Q4

REPORT INFORMATION
  Report Type: Spontaneous
  Country: FR (occurrence: FR)
  Receive Date: 20171222
  Receipt Date: 20171222
  Transmission Date: 20180321
  Serious: Yes (Hospitalization)
  Sender: FDA-Public Use
  Company Number: FR-CIPLA LTD.-2017FR23796

PATIENT

DRUGS (6)
  1. SERASTA 10 MG, COMPRIME [Suspect]
     Active Substance: OXAZEPAM
     Indication: WRONG PATIENT RECEIVED MEDICATION
     Dosage: 10 MG, UNK
     Route: 048
     Dates: start: 20171114, end: 20171114
  2. RISPERIDONE. [Suspect]
     Active Substance: RISPERIDONE
     Indication: WRONG PATIENT RECEIVED MEDICATION
     Dosage: 2 MG, UNK
     Route: 048
     Dates: start: 20171114, end: 20171114
  3. DIFFU K, GELULE [Suspect]
     Active Substance: POTASSIUM CHLORIDE
     Indication: WRONG PATIENT RECEIVED MEDICATION
     Dosage: 2 DF, UNK
     Route: 048
     Dates: start: 20171114, end: 20171114
  4. ACIDE FOLIQUE [Suspect]
     Active Substance: FOLIC ACID
     Indication: WRONG PATIENT RECEIVED MEDICATION
     Dosage: 10 MBQ, UNK
     Route: 048
     Dates: start: 20171114, end: 20171114
  5. FEROGRAD VITAMINE C [Suspect]
     Active Substance: ASCORBIC ACID\FERROUS SULFATE
     Indication: WRONG PATIENT RECEIVED MEDICATION
     Dosage: 1 DF, UNK
     Route: 048
     Dates: start: 20171114, end: 20171114
  6. LEVOTHYROX 150 MICROGRAMMES, COMPRIME SECABLE [Suspect]
     Active Substance: LEVOTHYROXINE SODIUM
     Indication: WRONG PATIENT RECEIVED MEDICATION
     Dosage: 150 ?G, UNK
     Route: 048
     Dates: start: 20171114, end: 20171114

REACTIONS (7)
  - Drug administration error [Recovered/Resolved]
  - Abdominal pain [Recovered/Resolved]
  - Nausea [Recovered/Resolved]
  - Wrong patient received medication [Recovered/Resolved]
  - Loss of consciousness [Recovered/Resolved]
  - Malaise [Recovered/Resolved]
  - Orthostatic hypotension [Recovered/Resolved]

NARRATIVE: CASE EVENT DATE: 20171114
